FAERS Safety Report 21073883 (Version 1)
Quarter: 2022Q3

REPORT INFORMATION
  Report Type: Report from Study
  Country: BR (occurrence: BR)
  Receive Date: 20220713
  Receipt Date: 20220713
  Transmission Date: 20221026
  Serious: Yes (Hospitalization, Other)
  Sender: FDA-Public Use
  Company Number: BR-BRISTOL-MYERS SQUIBB COMPANY-2022-066711

PATIENT
  Sex: Male

DRUGS (3)
  1. NIVOLUMAB\RELATLIMAB-RMBW [Suspect]
     Active Substance: NIVOLUMAB\RELATLIMAB-RMBW
     Indication: Metastatic malignant melanoma
     Route: 042
     Dates: start: 20220623
  2. LEVOTHYROXINE SODIUM [Concomitant]
     Active Substance: LEVOTHYROXINE SODIUM
     Indication: Product used for unknown indication
     Route: 065
  3. DIPIRONA [METAMIZOLE MAGNESIUM] [Concomitant]
     Indication: Product used for unknown indication
     Route: 065

REACTIONS (1)
  - Polyserositis [Recovering/Resolving]

NARRATIVE: CASE EVENT DATE: 20220627
